FAERS Safety Report 24224086 (Version 1)
Quarter: 2024Q3

REPORT INFORMATION
  Report Type: Spontaneous
  Country: US (occurrence: None)
  Receive Date: 20240818
  Receipt Date: 20240818
  Transmission Date: 20241017
  Serious: No
  Sender: Public
  Company Number: None

PATIENT
  Age: 55 Year
  Sex: Female
  Weight: 65.25 kg

DRUGS (1)
  1. DESVENLAFAXINE [Suspect]
     Active Substance: DESVENLAFAXINE
     Indication: Anxiety
     Dosage: 90 TABLETS DAILY ORAL
     Route: 048
     Dates: start: 20240814, end: 20240817

REACTIONS (1)
  - Drug hypersensitivity [None]
